FAERS Safety Report 4658314-6 (Version None)
Quarter: 2005Q2

REPORT INFORMATION
  Report Type: 
  Country: None (occurrence: None)
  Receive Date: 20050509
  Receipt Date: 20050425
  Transmission Date: 20051028
  Serious: Yes (Other)
  Sender: FDA-Public Use
  Company Number: HQWYE699805APR05

PATIENT
  Sex: Female

DRUGS (3)
  1. VENLAFAXINE HCL [Suspect]
     Dosage: SEE IMAGE
     Route: 048
     Dates: start: 20050315, end: 20050316
  2. VENLAFAXINE HCL [Suspect]
     Dosage: SEE IMAGE
     Route: 048
     Dates: start: 20050317, end: 20050405
  3. EFFEXOR XR [Suspect]
     Dosage: 75 MG 1X PER 1 DAY ORAL
     Route: 048
     Dates: start: 20050406, end: 20050407

REACTIONS (3)
  - CIRCULATORY COLLAPSE [None]
  - NAUSEA [None]
  - SLEEP DISORDER [None]
